FAERS Safety Report 15374188 (Version 2)
Quarter: 2019Q4

REPORT INFORMATION
  Report Type: Spontaneous
  Country: RU (occurrence: RU)
  Receive Date: 20180912
  Receipt Date: 20191221
  Transmission Date: 20200122
  Serious: Yes (Hospitalization)
  Sender: FDA-Public Use
  Company Number: PHHY2018RU097043

PATIENT
  Sex: Female

DRUGS (2)
  1. COSENTYX [Suspect]
     Active Substance: SECUKINUMAB
     Dosage: 150 MG, QW(0-2-4,THEN EVERY FOUR WEEKS)
     Route: 065
     Dates: start: 20180820
  2. COSENTYX [Suspect]
     Active Substance: SECUKINUMAB
     Indication: ANKYLOSING SPONDYLITIS
     Dosage: 150 MG, QW(0-2-4,THEN EVERY FOUR WEEKS)
     Route: 065
     Dates: start: 201801

REACTIONS (2)
  - Haematochezia [Unknown]
  - Abdominal distension [Unknown]
